FAERS Safety Report 12920319 (Version 2)
Quarter: 2016Q4

REPORT INFORMATION
  Report Type: Spontaneous
  Country: US (occurrence: US)
  Receive Date: 20161108
  Receipt Date: 20161214
  Transmission Date: 20170207
  Serious: No
  Sender: FDA-Public Use
  Company Number: US-JNJFOC-20160823446

PATIENT
  Sex: Female
  Weight: 58.06 kg

DRUGS (2)
  1. MODICON [Suspect]
     Active Substance: ETHINYL ESTRADIOL\NORETHINDRONE
     Indication: CONTRACEPTION
     Route: 065
  2. MODICON [Suspect]
     Active Substance: ETHINYL ESTRADIOL\NORETHINDRONE
     Indication: CONTRACEPTION
     Dosage: STARTED 20 YEARS AGO
     Route: 065

REACTIONS (3)
  - Anger [Unknown]
  - Product quality issue [Unknown]
  - Emotional distress [Unknown]
